FAERS Safety Report 18918027 (Version 1)
Quarter: 2021Q1

REPORT INFORMATION
  Report Type: Spontaneous
  Country: US (occurrence: US)
  Receive Date: 20210219
  Receipt Date: 20210219
  Transmission Date: 20210420
  Serious: No
  Sender: FDA-Public Use
  Company Number: US-PERRIGO-20US008760

PATIENT
  Age: 63 Year
  Sex: Female
  Weight: 53.52 kg

DRUGS (5)
  1. CARBIDOPA AND LEVODOPA [Concomitant]
     Active Substance: CARBIDOPA\LEVODOPA
     Indication: PARKINSON^S DISEASE
     Dosage: 20/100 MG, 1 AT LUNCH, 1/2 TABLET AT DINNER
     Route: 065
     Dates: start: 202002
  2. LORAZEPAM. [Concomitant]
     Active Substance: LORAZEPAM
     Indication: SEIZURE
     Dosage: UNK
     Route: 065
  3. SINEMET [Concomitant]
     Active Substance: CARBIDOPA\LEVODOPA
     Indication: PARKINSON^S DISEASE
     Dosage: 25/100 MG, AT BEDTIME
     Route: 065
     Dates: start: 202005
  4. KETOCONAZOLE. [Suspect]
     Active Substance: KETOCONAZOLE
     Indication: SEBORRHOEIC DERMATITIS
     Dosage: 1 APPLICATION, QD
     Route: 061
     Dates: start: 20200612, end: 20200614
  5. VIMPAT [Concomitant]
     Active Substance: LACOSAMIDE
     Indication: SEIZURE
     Dosage: UNK
     Route: 065
     Dates: start: 2014

REACTIONS (6)
  - Off label use [Recovered/Resolved]
  - Therapeutic response unexpected [Not Recovered/Not Resolved]
  - Application site dryness [Not Recovered/Not Resolved]
  - Application site irritation [Not Recovered/Not Resolved]
  - Application site discolouration [Recovering/Resolving]
  - Application site eczema [Not Recovered/Not Resolved]

NARRATIVE: CASE EVENT DATE: 20200612
